FAERS Safety Report 7742512-9 (Version None)
Quarter: 2011Q3

REPORT INFORMATION
  Report Type: 
  Country: None (occurrence: None)
  Receive Date: 20110912
  Receipt Date: 20110907
  Transmission Date: 20111222
  Serious: Yes (Hospitalization)
  Sender: FDA-Public Use
  Company Number: US-BAYER-200928488NA

PATIENT
  Age: 50 Year
  Sex: Male
  Weight: 91 kg

DRUGS (8)
  1. NEXAVAR [Suspect]
     Indication: HEPATIC NEOPLASM MALIGNANT
     Dosage: 400 MG, QD
     Route: 048
     Dates: start: 20090707, end: 20090726
  2. BENICAR HCT [Concomitant]
     Dosage: AS USED DOSE: 40/12.5 MG
     Dates: start: 20090101
  3. ENTECAVIR [Concomitant]
     Dosage: 0.5 MG, UNK
     Dates: start: 20081218, end: 20090629
  4. DILTIAZEM [Concomitant]
  5. CLONIDINE [Concomitant]
  6. ALISKIREN [Concomitant]
     Dosage: 300 MG, UNK
     Dates: start: 20090101
  7. NEXAVAR [Suspect]
     Dosage: 200 MG, QD
     Route: 048
     Dates: start: 20090818
  8. ANTIHYPERTENSIVES [Concomitant]
     Dates: start: 20090101

REACTIONS (1)
  - HEPATIC FAILURE [None]
